FAERS Safety Report 24825427 (Version 1)
Quarter: 2025Q1

REPORT INFORMATION
  Report Type: Spontaneous
  Country: KR (occurrence: KR)
  Receive Date: 20250109
  Receipt Date: 20250109
  Transmission Date: 20250409
  Serious: Yes (Hospitalization, Other)
  Sender: JOHNSON AND JOHNSON
  Company Number: KR-JNJFOC-20241290309

PATIENT
  Age: 71 Year
  Sex: Female

DRUGS (4)
  1. TAPENTADOL HYDROCHLORIDE [Suspect]
     Active Substance: TAPENTADOL HYDROCHLORIDE
     Indication: Bone cancer
     Route: 048
     Dates: start: 20201102, end: 20201103
  2. ACETAMINOPHEN [Suspect]
     Active Substance: ACETAMINOPHEN
     Indication: Bone cancer
     Route: 048
     Dates: start: 20201031, end: 20201103
  3. CODEINE PHOSPHATE [Suspect]
     Active Substance: CODEINE PHOSPHATE
     Indication: Bone cancer
     Route: 048
     Dates: start: 20201031, end: 20201103
  4. IBUPROFEN [Suspect]
     Active Substance: IBUPROFEN
     Indication: Bone cancer
     Dosage: 1 DOSAGE FORM, ONCE A DAY
     Dates: start: 20201031, end: 20201103

REACTIONS (2)
  - Seizure [Recovered/Resolved]
  - Inappropriate schedule of product administration [Unknown]

NARRATIVE: CASE EVENT DATE: 20201031
